FAERS Safety Report 7623227-4 (Version None)
Quarter: 2011Q3

REPORT INFORMATION
  Report Type: 
  Country: None (occurrence: None)
  Receive Date: 20110720
  Receipt Date: 20110715
  Transmission Date: 20111222
  Serious: Yes (Death)
  Sender: FDA-Public Use
  Company Number: PHHY2011JP03377

PATIENT
  Age: 22 Year
  Sex: Female
  Weight: 67.8 kg

DRUGS (6)
  1. CHLORAL HYDRATE [Suspect]
  2. TEGRETOL [Suspect]
     Indication: DEPRESSION
     Dosage: 100 MG, UNK
  3. ZOLPIDEM TARTRATE [Suspect]
     Indication: DEPRESSION
     Dosage: 10 MG, UNK
  4. FLUVOXAMINE MALEATE [Suspect]
     Indication: DEPRESSION
     Dosage: 25 MG, UNK
  5. BROMVALERYLUREA [Suspect]
  6. PHENOTHIAZINE [Suspect]

REACTIONS (9)
  - HEPATIC CONGESTION [None]
  - PULMONARY CONGESTION [None]
  - VOMITING [None]
  - VISCERAL CONGESTION [None]
  - TOXICITY TO VARIOUS AGENTS [None]
  - RENAL DISORDER [None]
  - OVERDOSE [None]
  - SPLEEN CONGESTION [None]
  - PETECHIAE [None]
